FAERS Safety Report 8808901 (Version 1)
Quarter: 2012Q4

REPORT INFORMATION
  Report Type: Spontaneous
  Country: GB (occurrence: None)
  Receive Date: 20120920
  Receipt Date: 20120920
  Transmission Date: 20130627
  Serious: Yes (Hospitalization)
  Sender: FDA-Public Use
  Company Number: 1413203

PATIENT
  Age: 67 Year
  Sex: Male

DRUGS (6)
  1. CALCIUM FOLINATE [Suspect]
     Indication: STOMACH CANCER
     Dosage: 20 mg/m^2 daily
     Route: 040
  2. CALCIUM FOLINATE [Suspect]
     Indication: STOMACH CANCER
     Dosage: 20 mg/m^2, intravenous bolus
     Route: 040
  3. FLUOROURACIL [Suspect]
     Indication: STOMACH CANCER
     Dosage: 425 mg/m^2, intravenous bo
  4. FLUOROURACIL [Suspect]
     Indication: STOMACH CANCER
     Dosage: 400 mg/m^2
  5. FLUOROURACIL [Suspect]
     Indication: STOMACH CANCER
  6. THERAPEUTIC RADIOPHARMCEUTICALS [Suspect]
     Indication: STOMACH CANCER
     Dosage: 45 Gray

REACTIONS (1)
  - Spinal compression fracture [None]
